FAERS Safety Report 13008257 (Version 3)
Quarter: 2017Q1

REPORT INFORMATION
  Report Type: Spontaneous
  Country: TR (occurrence: TR)
  Receive Date: 20161208
  Receipt Date: 20170302
  Transmission Date: 20170428
  Serious: Yes (Other)
  Sender: FDA-Public Use
  Company Number: TR-SUN PHARMACEUTICAL INDUSTRIES LTD-2016R1-128837

PATIENT
  Age: 15 Day

DRUGS (1)
  1. AMITRIPTYLINE [Suspect]
     Active Substance: AMITRIPTYLINE
     Indication: INSOMNIA
     Dosage: 10 MG, DAILY (LOW DOSE)
     Route: 063

REACTIONS (3)
  - Exposure during breast feeding [Recovered/Resolved]
  - Sedation [Recovered/Resolved]
  - Poor feeding infant [Recovered/Resolved]
